FAERS Safety Report 12592524 (Version 1)
Quarter: 2016Q3

REPORT INFORMATION
  Report Type: Report from Study
  Country: DE (occurrence: DE)
  Receive Date: 20160726
  Receipt Date: 20160726
  Transmission Date: 20161109
  Serious: Yes (Other)
  Sender: FDA-Public Use
  Company Number: PHHY2016DE099856

PATIENT
  Sex: Female

DRUGS (7)
  1. L-THYROXIN [Concomitant]
     Active Substance: LEVOTHYROXINE SODIUM
     Indication: HYPOTHYROIDISM
     Dosage: 150 MG, UNK
     Route: 065
  2. AMITRIPTYLIN [Concomitant]
     Active Substance: AMITRIPTYLINE
     Indication: DEPRESSION
     Dosage: 10 OT, UNK
     Route: 065
  3. LETROZOL [Suspect]
     Active Substance: LETROZOLE
     Indication: PRODUCT USED FOR UNKNOWN INDICATION
     Dosage: 2.5 MG, UNK
     Dates: start: 201411
  4. TRAMUNDIN [Concomitant]
     Active Substance: TRAMADOL HYDROCHLORIDE
     Indication: PAIN
     Dosage: 75 OT, UNK
     Route: 065
  5. NO TREATMENT RECEIVED [Suspect]
     Active Substance: UNSPECIFIED INGREDIENT
     Indication: PRODUCT USED FOR UNKNOWN INDICATION
     Route: 065
  6. XGEVA [Suspect]
     Active Substance: DENOSUMAB
     Indication: PRODUCT USED FOR UNKNOWN INDICATION
     Route: 065
  7. BONDRONAT [Concomitant]
     Active Substance: IBANDRONIC ACID
     Indication: METASTASES TO BONE
     Dosage: 50 MG, UNK
     Route: 065
     Dates: start: 200905

REACTIONS (1)
  - Polyneuropathy [Recovered/Resolved]

NARRATIVE: CASE EVENT DATE: 20150720
